FAERS Safety Report 8468886-1 (Version None)
Quarter: 2012Q2

REPORT INFORMATION
  Report Type: 
  Country: None (occurrence: None)
  Receive Date: 20120626
  Receipt Date: 20120621
  Transmission Date: 20120825
  Serious: Yes (Other)
  Sender: FDA-Public Use
  Company Number: NL-PFIZER INC-2012110713

PATIENT
  Age: 80 Year
  Sex: Female

DRUGS (5)
  1. AMLODIPINE BESYLATE [Suspect]
     Dosage: UNK
  2. LOSARTAN POTASSIUM [Suspect]
     Dosage: 100 MG, 1X/DAY
  3. BARNIDIPINE HYDROCHLORIDE [Suspect]
     Dosage: 10 MG, 1X/DAY
  4. HYDROCHLOROTHIAZIDE [Suspect]
     Dosage: 12.5 MG, 1X/DAY
  5. TOLTERODINE TARTRATE [Suspect]
     Dosage: 1.5 MG, 2X/DAY

REACTIONS (10)
  - CONSTIPATION [None]
  - EYE DISORDER [None]
  - PRURITUS [None]
  - RASH MACULAR [None]
  - DRY SKIN [None]
  - DRY EYE [None]
  - DRY MOUTH [None]
  - JOINT SWELLING [None]
  - PAIN [None]
  - POLLAKIURIA [None]
